FAERS Safety Report 8436393-8 (Version None)
Quarter: 2012Q2

REPORT INFORMATION
  Report Type: 
  Country: None (occurrence: None)
  Receive Date: 20120607
  Receipt Date: 20120607
  Transmission Date: 20120825
  Serious: Yes (Disabling)
  Sender: FDA-Public Use
  Company Number: None

PATIENT
  Sex: Female
  Weight: 77.3 kg

DRUGS (1)
  1. KENALOG [Suspect]
     Indication: URTICARIA
     Dosage: 1 INJECTION 1X 030 INTRAMUSCULAR (LEFT BUTTOCK)
     Route: 030
     Dates: start: 20120106

REACTIONS (2)
  - INJECTION SITE INDURATION [None]
  - SKIN EXFOLIATION [None]
